FAERS Safety Report 13027907 (Version 1)
Quarter: 2016Q4

REPORT INFORMATION
  Report Type: Spontaneous
  Country: US (occurrence: US)
  Receive Date: 20161214
  Receipt Date: 20161214
  Transmission Date: 20170207
  Serious: No
  Sender: FDA-Public Use
  Company Number: US-PFIZER INC-2016574750

PATIENT
  Age: 52 Year
  Sex: Female
  Weight: 51 kg

DRUGS (1)
  1. LIDOCAINE HCL [Suspect]
     Active Substance: LIDOCAINE HYDROCHLORIDE
     Indication: PAIN
     Dosage: 1.5 ML, UNK (IN THE RIGHT AND LEFT TRAPEZUS, 2% 20MG/1ML)
     Route: 030

REACTIONS (3)
  - Pharyngeal hypoaesthesia [Unknown]
  - Panic attack [Unknown]
  - Heart rate increased [Unknown]
